FAERS Safety Report 7681387-3 (Version None)
Quarter: 2011Q3

REPORT INFORMATION
  Report Type: 
  Country: None (occurrence: None)
  Receive Date: 20110809
  Receipt Date: 20110802
  Transmission Date: 20111222
  Serious: Yes (Hospitalization, Other)
  Sender: FDA-Public Use
  Company Number: 2010SP061280

PATIENT
  Sex: Female

DRUGS (2)
  1. INTRON A [Suspect]
     Dosage: 35 MIU;IV; 25 MIU;IV
     Route: 042
     Dates: start: 20101011
  2. INTRON A [Suspect]
     Dosage: 10 MIU;TIW;SC; 5 MIU;TWI;SC
     Route: 058
     Dates: start: 20101108

REACTIONS (17)
  - PYREXIA [None]
  - BLOOD POTASSIUM DECREASED [None]
  - PAIN [None]
  - HYPERMETROPIA [None]
  - IRRITABILITY [None]
  - FATIGUE [None]
  - MEMORY IMPAIRMENT [None]
  - CONSTIPATION [None]
  - CHEST DISCOMFORT [None]
  - NAUSEA [None]
  - ALOPECIA [None]
  - CHILLS [None]
  - DECREASED APPETITE [None]
  - ASTHENIA [None]
  - MYOPIA [None]
  - VISUAL ACUITY REDUCED [None]
  - RASH [None]
